FAERS Safety Report 9291991 (Version 2)
Quarter: 2013Q2

REPORT INFORMATION
  Report Type: Spontaneous
  Country: US (occurrence: US)
  Receive Date: 20130516
  Receipt Date: 20130618
  Transmission Date: 20140414
  Serious: No
  Sender: FDA-Public Use
  Company Number: US-PFIZER INC-2009175688

PATIENT
  Sex: Male

DRUGS (6)
  1. SERTRALINE HCL [Suspect]
     Indication: ANXIETY
     Dosage: 50 MG, 1X/DAY
     Route: 064
     Dates: start: 2005
  2. PROVERA [Suspect]
     Indication: MENSTRUATION IRREGULAR
     Dosage: UNK
     Route: 064
  3. ZOLOFT [Suspect]
     Indication: HALLUCINATION
     Dosage: 25 MG, UNK
     Route: 064
     Dates: start: 1998
  4. ZOLOFT [Suspect]
     Indication: PANIC ATTACK
     Dosage: 50 MG, 1X/DAY
     Route: 064
  5. ZOLOFT [Suspect]
     Indication: ANXIETY
  6. BIOTIN [Concomitant]
     Dosage: UNK, DAILY
     Route: 064

REACTIONS (2)
  - Maternal exposure during pregnancy [Unknown]
  - Jaundice neonatal [Unknown]
